FAERS Safety Report 4945187-7 (Version None)
Quarter: 2006Q1

REPORT INFORMATION
  Report Type: 
  Country: None (occurrence: None)
  Receive Date: 20060316
  Receipt Date: 20060305
  Transmission Date: 20060701
  Serious: Yes (Other)
  Sender: FDA-Public Use
  Company Number: PHMT2006CA00820

PATIENT
  Sex: Female

DRUGS (1)
  1. VOLTAREN OPHTHALMIC SOLUTION SD (NVO) [Suspect]

REACTIONS (2)
  - DYSGRAPHIA [None]
  - DYSPHONIA [None]
